FAERS Safety Report 18846050 (Version 1)
Quarter: 2021Q1

REPORT INFORMATION
  Report Type: Report from Study
  Country: US (occurrence: US)
  Receive Date: 20210203
  Receipt Date: 20210203
  Transmission Date: 20210419
  Serious: No
  Sender: FDA-Public Use
  Company Number: US-EXELIXIS-CABO-20029859

PATIENT
  Age: 42 Year
  Sex: Female

DRUGS (2)
  1. CABOMETYX [Suspect]
     Active Substance: CABOZANTINIB S-MALATE
     Indication: ADRENAL GLAND CANCER
     Dosage: 60 MG, QD (ON AN EMPTY STOMACH AT LEAST 1 HR BEFORE OR 2 HRS AFTER EATING)
     Route: 048
  2. LISINOPRIL. [Concomitant]
     Active Substance: LISINOPRIL
     Dosage: UNK

REACTIONS (5)
  - Skin exfoliation [Unknown]
  - Skin fissures [Recovering/Resolving]
  - Skin papilloma [Unknown]
  - Off label use [Unknown]
  - Blister [Unknown]

NARRATIVE: CASE EVENT DATE: 20200503
